FAERS Safety Report 4314555-9 (Version None)
Quarter: 2004Q1

REPORT INFORMATION
  Report Type: 
  Country: None (occurrence: None)
  Receive Date: 20040309
  Receipt Date: 20040115
  Transmission Date: 20041129
  Serious: Yes (Disabling)
  Sender: FDA-Public Use
  Company Number: WAES 0401USA01205

PATIENT
  Sex: Female
  Weight: 58 kg

DRUGS (17)
  1. FOSAMAX [Concomitant]
     Indication: OSTEOPOROSIS
     Route: 048
  2. ASPIRIN [Concomitant]
  3. ATENOLOL [Concomitant]
     Indication: HYPERTENSION
     Route: 048
  4. ATENOLOL [Concomitant]
     Indication: CORONARY ARTERY DISEASE
     Route: 048
  5. LEXAPRO [Concomitant]
  6. ZETIA [Concomitant]
  7. FOLIC ACID [Concomitant]
  8. HYDRODIURIL [Concomitant]
     Indication: HYPERTENSION
     Route: 048
  9. HYDRODIURIL [Concomitant]
     Indication: CORONARY ARTERY DISEASE
     Route: 048
  10. LEVOTHROID [Concomitant]
  11. ASACOL [Concomitant]
     Indication: COLITIS ULCERATIVE
     Route: 048
  12. NIFEDIPINE [Concomitant]
     Indication: HYPERTENSION
     Route: 048
  13. NITROGLYCERIN [Concomitant]
  14. ZOCOR [Suspect]
     Indication: HYPERLIPIDAEMIA
     Route: 048
     Dates: end: 20031114
  15. ZOCOR [Suspect]
     Indication: BLOOD CHOLESTEROL INCREASED
     Route: 048
     Dates: end: 20031114
  16. VITAMIN D (UNSPECIFIED) [Concomitant]
  17. VITAMIN E [Concomitant]

REACTIONS (2)
  - NEUROPATHY [None]
  - PERIPHERAL SENSORY NEUROPATHY [None]
